FAERS Safety Report 5322415-X (Version None)
Quarter: 2007Q2

REPORT INFORMATION
  Report Type: 
  Country: None (occurrence: None)
  Receive Date: 20070511
  Receipt Date: 20070402
  Transmission Date: 20071010
  Serious: Yes (Death)
  Sender: FDA-Public Use
  Company Number: NL-AVENTIS-200714026GDDC

PATIENT
  Age: 75 Year
  Sex: Male

DRUGS (3)
  1. LANTUS [Suspect]
  2. SIMVASTATIN [Concomitant]
     Dosage: DOSE: UNK
     Route: 048
     Dates: start: 20060519
  3. CO-APROVEL [Concomitant]
     Dosage: DOSE: UNK
     Route: 048
     Dates: start: 20060612

REACTIONS (1)
  - CARDIAC FAILURE [None]
